FAERS Safety Report 25754744 (Version 1)
Quarter: 2025Q3

REPORT INFORMATION
  Report Type: Spontaneous
  Country: QA (occurrence: QA)
  Receive Date: 20250903
  Receipt Date: 20250903
  Transmission Date: 20251021
  Serious: Yes (Life-Threatening, Hospitalization, Other)
  Sender: STRIDES
  Company Number: QA-STRIDES ARCOLAB LIMITED-2025SP011141

PATIENT
  Age: 8 Year
  Sex: Female

DRUGS (9)
  1. METHOTREXATE [Suspect]
     Active Substance: METHOTREXATE
     Indication: Chloroma
     Route: 065
  2. CYTARABINE [Suspect]
     Active Substance: CYTARABINE
     Indication: Chloroma
     Route: 037
  3. CYTARABINE [Suspect]
     Active Substance: CYTARABINE
     Route: 042
  4. CYTARABINE [Suspect]
     Active Substance: CYTARABINE
     Route: 042
  5. CYTARABINE [Suspect]
     Active Substance: CYTARABINE
     Route: 037
  6. CYTARABINE [Suspect]
     Active Substance: CYTARABINE
     Route: 042
  7. DEXRAZOXANE [Suspect]
     Active Substance: DEXRAZOXANE
     Indication: Chloroma
     Route: 042
  8. MITOXANTRONE [Suspect]
     Active Substance: MITOXANTRONE HYDROCHLORIDE
     Indication: Chloroma
     Route: 042
  9. HYDROCORTISONE SODIUM SUCCINATE [Concomitant]
     Active Substance: HYDROCORTISONE SODIUM SUCCINATE
     Indication: Product used for unknown indication
     Route: 065

REACTIONS (5)
  - Febrile neutropenia [Recovered/Resolved]
  - Thrombocytopenia [Recovered/Resolved]
  - Septic shock [Recovered/Resolved]
  - Pneumocystis jirovecii pneumonia [Recovered/Resolved]
  - Off label use [Unknown]
